FAERS Safety Report 8430968-8 (Version None)
Quarter: 2012Q2

REPORT INFORMATION
  Report Type: 
  Country: None (occurrence: None)
  Receive Date: 20120612
  Receipt Date: 20120608
  Transmission Date: 20120825
  Serious: Yes (Other)
  Sender: FDA-Public Use
  Company Number: AU-PFIZER INC-2012116186

PATIENT
  Sex: Female
  Weight: 67 kg

DRUGS (5)
  1. PRISTIQ [Suspect]
     Indication: DEPRESSION
     Dosage: 50 MG, 1X/DAY, MANE
     Route: 048
     Dates: start: 20120416, end: 20120430
  2. PRISTIQ [Suspect]
     Indication: PROPHYLAXIS
  3. PRISTIQ [Suspect]
     Indication: SLEEP DISORDER
  4. TEGRETOL [Concomitant]
     Indication: EPILEPSY
     Dosage: 200 MG, 2X/DAY
     Route: 048
  5. PRISTIQ [Suspect]
     Indication: LETHARGY

REACTIONS (1)
  - EPILEPSY [None]
